FAERS Safety Report 9838205 (Version 2)
Quarter: 2014Q1

REPORT INFORMATION
  Report Type: Spontaneous
  Country: GB (occurrence: GB)
  Receive Date: 20140123
  Receipt Date: 20140131
  Transmission Date: 20141002
  Serious: Yes (Other)
  Sender: FDA-Public Use
  Company Number: PHHY2014GB007148

PATIENT
  Age: 58 Year
  Sex: Female
  Weight: 63.5 kg

DRUGS (8)
  1. DICLOFENAC [Suspect]
     Indication: PROCEDURAL PAIN
     Dosage: THREE TIMES A DAY, (EVERY 8 HOURS). WITH OR AFTER FOOD
     Route: 048
     Dates: start: 20140110, end: 20140111
  2. DICLOFENAC [Suspect]
     Indication: ANTIINFLAMMATORY THERAPY
  3. PROPRANOLOL [Concomitant]
  4. DIAZEPAM [Concomitant]
  5. AMITRIPTYLINE HYDROCHLORIDE [Concomitant]
  6. TOLTERODINE [Concomitant]
  7. CITALOPRAM HYDROBROMIDE [Concomitant]
  8. ELLESTE-DUET [Concomitant]

REACTIONS (8)
  - Chills [Recovered/Resolved]
  - Syncope [Recovered/Resolved]
  - Hyperhidrosis [Recovered/Resolved]
  - Pruritus [Recovered/Resolved]
  - Local swelling [Recovered/Resolved]
  - Paraesthesia oral [Recovered/Resolved]
  - Dizziness [Recovered/Resolved]
  - Nausea [Recovered/Resolved]
